FAERS Safety Report 11318129 (Version 2)
Quarter: 2015Q4

REPORT INFORMATION
  Report Type: Report from Study
  Country: US (occurrence: US)
  Receive Date: 20150728
  Receipt Date: 20151215
  Transmission Date: 20160304
  Serious: Yes (Hospitalization, Other)
  Sender: FDA-Public Use
  Company Number: US-BAXTER-2015BAX039889

PATIENT
  Age: 46 Year
  Sex: Female

DRUGS (19)
  1. CARBOPLATIN. [Suspect]
     Active Substance: CARBOPLATIN
     Dosage: AUC 4; DAY 1 OF 21 DAY CYCLE DURING CHEMOTHERAPY SEGMENT 1
     Route: 042
     Dates: start: 20150508, end: 20150508
  2. DOXORUBICIN [Suspect]
     Active Substance: DOXORUBICIN
     Indication: TRIPLE NEGATIVE BREAST CANCER
     Dosage: DAY 1 OF 21 DAY CYCLE DURING CHEMOTHERAPY SEGMENT 2
     Route: 042
     Dates: start: 20150619, end: 20150619
  3. IMODIUM [Concomitant]
     Active Substance: LOPERAMIDE HYDROCHLORIDE
     Indication: DIARRHOEA
     Route: 065
     Dates: start: 20150320
  4. DEXAMETHASONE. [Concomitant]
     Active Substance: DEXAMETHASONE
     Indication: PREMEDICATION
     Route: 048
     Dates: start: 20150313, end: 20150619
  5. COMBIVENT [Concomitant]
     Active Substance: ALBUTEROL SULFATE\IPRATROPIUM BROMIDE
     Indication: DYSPNOEA
     Route: 065
     Dates: start: 20150519
  6. VELIPARIB [Suspect]
     Active Substance: VELIPARIB
     Indication: TRIPLE NEGATIVE BREAST CANCER
     Dosage: THROUGH CHEMOTHERAPY SEGMENT 1
     Route: 048
     Dates: start: 20150313, end: 20150521
  7. PACLITAXEL. [Suspect]
     Active Substance: PACLITAXEL
     Indication: TRIPLE NEGATIVE BREAST CANCER
     Dosage: DAY 1 OF 12 WEEKLY CYCLES DURING CHEMOTHERAPY SEGMENT 1
     Route: 042
     Dates: start: 20150313, end: 20150522
  8. OXYCODONE [Concomitant]
     Active Substance: OXYCODONE
     Indication: PAIN
     Route: 048
     Dates: start: 20150619
  9. ENDOXAN CYCLOPHOSPHAMIDE 1G (AS MONOHYDRATE) POWDER FOR INJECTION VIAL [Suspect]
     Active Substance: CYCLOPHOSPHAMIDE
     Indication: TRIPLE NEGATIVE BREAST CANCER
     Dosage: DAY 1 OF 21 DAY CYCLE DURING CHEMOTHERAPY SEGMENT 2
     Route: 042
     Dates: start: 20150619, end: 20150619
  10. CARBOPLATIN. [Suspect]
     Active Substance: CARBOPLATIN
     Dosage: AUC 5; DAY 1 OF 21 DAY CYCLE DURING CHEMOTHERAPY SEGMENT 1
     Route: 042
     Dates: start: 20150417, end: 20150417
  11. EXCEDRIN MIGRAINE [Concomitant]
     Active Substance: ACETAMINOPHEN\ASPIRIN\CAFFEINE
     Indication: MIGRAINE
     Route: 048
     Dates: start: 20150220
  12. NEULASTA [Concomitant]
     Active Substance: PEGFILGRASTIM
     Indication: PRODUCT USED FOR UNKNOWN INDICATION
     Route: 065
     Dates: start: 201506
  13. ATENOLOL. [Concomitant]
     Active Substance: ATENOLOL
     Indication: HYPERTENSION
     Route: 048
     Dates: start: 20150112
  14. LORAZEPAM. [Concomitant]
     Active Substance: LORAZEPAM
     Indication: NAUSEA
     Dosage: EVERY 6 HOURS
     Route: 065
     Dates: start: 20150424
  15. PALONOSETRON [Concomitant]
     Active Substance: PALONOSETRON
     Indication: PREMEDICATION
     Route: 042
     Dates: start: 20150313, end: 20150619
  16. FAMOTIDINE. [Concomitant]
     Active Substance: FAMOTIDINE
     Indication: PREMEDICATION
     Route: 042
     Dates: start: 20150313, end: 20150612
  17. LORAZEPAM. [Concomitant]
     Active Substance: LORAZEPAM
     Indication: VOMITING
  18. CARBOPLATIN. [Suspect]
     Active Substance: CARBOPLATIN
     Indication: TRIPLE NEGATIVE BREAST CANCER
     Dosage: AUC 6; DAY 1 OF 21 DAY CYCLE DURING CHEMOTHERAPY SEGMENT 1
     Route: 042
     Dates: start: 20150313, end: 20150313
  19. DIPHENHYDRAMINE. [Concomitant]
     Active Substance: DIPHENHYDRAMINE
     Indication: PREMEDICATION
     Route: 042
     Dates: start: 20150313, end: 20150612

REACTIONS (2)
  - Mallory-Weiss syndrome [Recovered/Resolved]
  - Failure to thrive [Unknown]

NARRATIVE: CASE EVENT DATE: 20150619
